FAERS Safety Report 5602436-X (Version None)
Quarter: 2008Q1

REPORT INFORMATION
  Report Type: 
  Country: None (occurrence: None)
  Receive Date: 20080125
  Receipt Date: 20080115
  Transmission Date: 20080703
  Serious: Yes (Hospitalization)
  Sender: FDA-Public Use
  Company Number: FR-ABBOTT-08P-056-0433750-00

PATIENT
  Sex: Female

DRUGS (1)
  1. HUMIRA [Suspect]
     Indication: RHEUMATOID ARTHRITIS
     Route: 058
     Dates: start: 20070515, end: 20070823

REACTIONS (5)
  - GENERAL PHYSICAL CONDITION ABNORMAL [None]
  - LYMPHADENOPATHY [None]
  - LYMPHOMA [None]
  - PYREXIA [None]
  - WEIGHT DECREASED [None]
